FAERS Safety Report 5384051-9 (Version None)
Quarter: 2007Q3

REPORT INFORMATION
  Report Type: 
  Country: None (occurrence: None)
  Receive Date: 20070709
  Receipt Date: 20061229
  Transmission Date: 20080115
  Serious: Yes (Other)
  Sender: FDA-Public Use
  Company Number: US-2006-041012

PATIENT
  Age: 68 Year
  Sex: Male

DRUGS (1)
  1. ULTRAVIST 300 [Suspect]
     Indication: COMPUTERISED TOMOGRAM THORAX
     Dosage: 150 ML, 1 DOSE, INTRAVENOUS
     Route: 042
     Dates: start: 20061226, end: 20061226

REACTIONS (3)
  - ANAPHYLACTIC REACTION [None]
  - BRONCHOSPASM [None]
  - LARYNGOSPASM [None]
